FAERS Safety Report 8662011 (Version 3)
Quarter: 2021Q1

REPORT INFORMATION
  Report Type: Report from Study
  Country: US (occurrence: US)
  Receive Date: 20120712
  Receipt Date: 20210205
  Transmission Date: 20210420
  Serious: Yes (Death, Congenital Anomaly, Other)
  Sender: FDA-Public Use
  Company Number: US-VIIV HEALTHCARE LIMITED-A0983997A

PATIENT
  Age: 0 Year
  Sex: Female
  Weight: 3.1 kg

DRUGS (4)
  1. ZIDOVUDINE. [Suspect]
     Active Substance: ZIDOVUDINE
     Indication: ANTIVIRAL PROPHYLAXIS
     Dosage: 630 MG, QD
     Route: 064
     Dates: start: 20111208, end: 20111208
  2. BETAMETHASONE. [Concomitant]
     Active Substance: BETAMETHASONE
     Indication: PRODUCT USED FOR UNKNOWN INDICATION
     Dosage: UNK
  3. NIFEDIPINE. [Concomitant]
     Active Substance: NIFEDIPINE
     Indication: PRODUCT USED FOR UNKNOWN INDICATION
     Dosage: UNK
  4. ABACAVIR SULPHATE+LAMIVUDINE+ZIDOVUDINE [Suspect]
     Active Substance: ABACAVIR SULFATE\LAMIVUDINE\ZIDOVUDINE
     Indication: HIV INFECTION
     Dosage: 2 DF (TABLET), QD
     Route: 064

REACTIONS (18)
  - Tricuspid valve disease [Unknown]
  - Foetal exposure during pregnancy [Unknown]
  - Pterygium colli [Unknown]
  - Cerebral ventricle dilatation [Unknown]
  - Right atrial enlargement [Unknown]
  - Congenital nose malformation [Unknown]
  - Congenital cardiovascular anomaly [Fatal]
  - Tricuspid valve incompetence [Unknown]
  - Right ventricular hypertrophy [Unknown]
  - Foetal chromosome abnormality [Unknown]
  - Low set ears [Unknown]
  - Systolic dysfunction [Fatal]
  - Congenital pulmonary artery anomaly [Unknown]
  - Heart disease congenital [Fatal]
  - Atrial septal defect [Fatal]
  - Patent ductus arteriosus [Fatal]
  - Congenital pulmonary valve atresia [Unknown]
  - Foetal cystic hygroma [Unknown]

NARRATIVE: CASE EVENT DATE: 20110804
